FAERS Safety Report 5001868-0 (Version None)
Quarter: 2006Q2

REPORT INFORMATION
  Report Type: 
  Country: None (occurrence: None)
  Receive Date: 20060515
  Receipt Date: 20060508
  Transmission Date: 20061013
  Serious: Yes (Other)
  Sender: FDA-Public Use
  Company Number: US-JNJFOC-20060502293

PATIENT
  Sex: Female

DRUGS (1)
  1. REMICADE [Suspect]
     Route: 042

REACTIONS (2)
  - EXPRESSIVE LANGUAGE DISORDER [None]
  - TREMOR [None]
